FAERS Safety Report 10666840 (Version 2)
Quarter: 2014Q4

REPORT INFORMATION
  Report Type: Spontaneous
  Country: JP (occurrence: JP)
  Receive Date: 20141222
  Receipt Date: 20141226
  Transmission Date: 20150529
  Serious: Yes (Other)
  Sender: FDA-Public Use
  Company Number: JP-009507513-1412JPN008231

PATIENT
  Age: 43 Year
  Sex: Female

DRUGS (2)
  1. PEGINTRON [Suspect]
     Active Substance: PEGINTERFERON ALFA-2B
     Dosage: UNK, DAILY DOSE UNKNOWN
     Route: 058
     Dates: start: 200711, end: 200804
  2. REBETOL [Suspect]
     Active Substance: RIBAVIRIN
     Dosage: UNK, DAILY DOSE UNKNOWN
     Route: 048
     Dates: start: 200711, end: 200803

REACTIONS (1)
  - Diabetes mellitus [Unknown]
